FAERS Safety Report 14092217 (Version 3)
Quarter: 2017Q4

REPORT INFORMATION
  Report Type: Spontaneous
  Country: JP (occurrence: JP)
  Receive Date: 20171016
  Receipt Date: 20171023
  Transmission Date: 20180321
  Serious: Yes (Other)
  Sender: FDA-Public Use
  Company Number: JP-ROCHE-2007318

PATIENT
  Age: 43 Year
  Sex: Female

DRUGS (1)
  1. ACTEMRA [Suspect]
     Active Substance: TOCILIZUMAB
     Indication: RHEUMATOID ARTHRITIS
     Dosage: DOSAGE IS UNCERTAIN.
     Route: 065

REACTIONS (5)
  - Ovarian cancer metastatic [Unknown]
  - Abdominal mass [Unknown]
  - Pelvic mass [Unknown]
  - Ovarian epithelial cancer [Unknown]
  - Haematoma [Unknown]
